FAERS Safety Report 17447705 (Version 1)
Quarter: 2020Q1

REPORT INFORMATION
  Report Type: Spontaneous
  Country: GB (occurrence: GB)
  Receive Date: 20200221
  Receipt Date: 20200221
  Transmission Date: 20200409
  Serious: Yes (Hospitalization)
  Sender: FDA-Public Use
  Company Number: GB-ELI_LILLY_AND_COMPANY-GB202002004738

PATIENT
  Age: 76 Year
  Sex: Female

DRUGS (2)
  1. ABEMACICLIB [Suspect]
     Active Substance: ABEMACICLIB
     Dosage: 200 MG, DAILY
     Route: 048
     Dates: start: 20190708, end: 20190809
  2. ABEMACICLIB [Suspect]
     Active Substance: ABEMACICLIB
     Indication: PRODUCT USED FOR UNKNOWN INDICATION
     Dosage: 300 MG, DAILY
     Route: 048
     Dates: start: 20190627, end: 20190708

REACTIONS (7)
  - Diarrhoea [Recovered/Resolved]
  - Acute kidney injury [Unknown]
  - Dizziness [Unknown]
  - Nausea [Recovered/Resolved]
  - Dehydration [Unknown]
  - Vomiting [Recovered/Resolved]
  - Blood creatinine increased [Unknown]

NARRATIVE: CASE EVENT DATE: 20190627
